FAERS Safety Report 12005527 (Version 2)
Quarter: 2016Q2

REPORT INFORMATION
  Report Type: Spontaneous
  Country: US (occurrence: US)
  Receive Date: 20160204
  Receipt Date: 20160415
  Transmission Date: 20160815
  Serious: Yes (Hospitalization)
  Sender: FDA-Public Use
  Company Number: US-ENDO PHARMACEUTICALS INC.-2016-000811

PATIENT
  Age: 75 Year
  Sex: Male
  Weight: 85.35 kg

DRUGS (1)
  1. TESTIM [Suspect]
     Active Substance: TESTOSTERONE
     Indication: ANDROGEN REPLACEMENT THERAPY
     Route: 062
     Dates: start: 20080303, end: 20110517

REACTIONS (19)
  - Heparin-induced thrombocytopenia [Unknown]
  - Benign prostatic hyperplasia [Unknown]
  - Acute respiratory failure [Unknown]
  - Hyperbilirubinaemia [Unknown]
  - Hypokalaemia [Unknown]
  - Metabolic acidosis [Unknown]
  - Hypoxic-ischaemic encephalopathy [Unknown]
  - Arteriosclerosis [Unknown]
  - Acute kidney injury [Unknown]
  - Gynaecomastia [Unknown]
  - Heart disease congenital [Unknown]
  - Ischaemic cardiomyopathy [Unknown]
  - Acute myocardial infarction [Unknown]
  - Cerebrovascular accident [Unknown]
  - Dyslipidaemia [Unknown]
  - Hypertension [Unknown]
  - Cardiac arrest [Recovered/Resolved]
  - Atrial fibrillation [Unknown]
  - Klebsiella sepsis [Unknown]

NARRATIVE: CASE EVENT DATE: 20100703
